FAERS Safety Report 7266649-6 (Version None)
Quarter: 2011Q1

REPORT INFORMATION
  Report Type: 
  Country: None (occurrence: None)
  Receive Date: 20110201
  Receipt Date: 20110125
  Transmission Date: 20110831
  Serious: Yes (Other)
  Sender: FDA-Public Use
  Company Number: IL-AMGEN-ISRSP2011005448

PATIENT
  Age: 50 Year
  Sex: Female

DRUGS (1)
  1. ENBREL [Suspect]
     Indication: PSORIATIC ARTHROPATHY
     Dosage: 25 MG, 2X/WEEK

REACTIONS (4)
  - SKIN INFECTION [None]
  - DENTAL CARIES [None]
  - PSORIATIC ARTHROPATHY [None]
  - URINARY TRACT INFECTION [None]
